FAERS Safety Report 6517377-3 (Version None)
Quarter: 2009Q4

REPORT INFORMATION
  Report Type: 
  Country: None (occurrence: None)
  Receive Date: 20091218
  Receipt Date: 20091209
  Transmission Date: 20100525
  Serious: Yes (Death, Other)
  Sender: FDA-Public Use
  Company Number: 233973J09USA

PATIENT
  Age: 73 Year
  Sex: Female

DRUGS (1)
  1. REBIF [Suspect]
     Indication: MULTIPLE SCLEROSIS
     Dates: end: 20080110

REACTIONS (3)
  - CORONARY ARTERY OCCLUSION [None]
  - DISEASE COMPLICATION [None]
  - MULTIPLE SCLEROSIS [None]
